FAERS Safety Report 20774387 (Version 1)
Quarter: 2022Q2

REPORT INFORMATION
  Report Type: Spontaneous
  Country: US (occurrence: US)
  Receive Date: 20220502
  Receipt Date: 20220502
  Transmission Date: 20220720
  Serious: No
  Sender: FDA-Public Use
  Company Number: US-PFIZER INC-202100962907

PATIENT
  Age: 58 Year
  Sex: Male
  Weight: 104.33 kg

DRUGS (2)
  1. GABAPENTIN [Suspect]
     Active Substance: GABAPENTIN
     Indication: Arthralgia
     Dosage: UNK
  2. GABAPENTIN [Suspect]
     Active Substance: GABAPENTIN
     Indication: Restlessness

REACTIONS (2)
  - Off label use [Unknown]
  - Drug ineffective [Unknown]
